FAERS Safety Report 24451327 (Version 1)
Quarter: 2024Q4

REPORT INFORMATION
  Report Type: Spontaneous
  Country: US (occurrence: US)
  Receive Date: 20241017
  Receipt Date: 20241017
  Transmission Date: 20250115
  Serious: Yes (Hospitalization)
  Sender: STRIDES
  Company Number: US-STRIDES ARCOLAB LIMITED-2024SP013385

PATIENT
  Age: 33 Year

DRUGS (1)
  1. TESTOSTERONE [Suspect]
     Active Substance: TESTOSTERONE
     Indication: Transgender hormonal therapy
     Dosage: UNK
     Route: 065
     Dates: start: 2009

REACTIONS (2)
  - Idiopathic intracranial hypertension [Recovered/Resolved]
  - Cerebrospinal fluid leakage [Recovered/Resolved]
